FAERS Safety Report 5337439-6 (Version None)
Quarter: 2007Q2

REPORT INFORMATION
  Report Type: 
  Country: None (occurrence: None)
  Receive Date: 20070529
  Receipt Date: 20070524
  Transmission Date: 20071010
  Serious: Yes (Hospitalization)
  Sender: FDA-Public Use
  Company Number: NG-ROXANE LABORATORIES, INC-2007-BP-07011RO

PATIENT
  Age: 38 Year
  Sex: Female

DRUGS (7)
  1. CYCLOPHOSPHAMIDE [Suspect]
     Indication: CHEMOTHERAPY
     Dosage: 650 MG DAY 1 AND DAY 8
     Route: 042
  2. ADRIAMYCIN PFS [Suspect]
     Indication: CHEMOTHERAPY
     Dosage: 45 MG DAY 1 AND DAY 8
     Route: 042
  3. VINCRISTINE [Suspect]
     Indication: CHEMOTHERAPY
     Dosage: 1.5 MG DAY 1 AND DAY 8
     Route: 042
  4. PREDNISOLONE [Suspect]
     Indication: CHEMOTHERAPY
     Route: 048
  5. LAMIVUDINE [Concomitant]
     Indication: HIV TEST POSITIVE
     Route: 048
     Dates: start: 20050501
  6. NEVIRAPINE [Concomitant]
     Indication: HIV TEST POSITIVE
     Route: 048
     Dates: start: 20050501
  7. STAVUDINE [Concomitant]
     Indication: HIV TEST POSITIVE
     Route: 048
     Dates: start: 20050501

REACTIONS (2)
  - HERPES ZOSTER [None]
  - RASH VESICULAR [None]
